FAERS Safety Report 24568072 (Version 2)
Quarter: 2024Q4

REPORT INFORMATION
  Report Type: Spontaneous
  Country: US (occurrence: US)
  Receive Date: 20241031
  Receipt Date: 20241106
  Transmission Date: 20250115
  Serious: No
  Sender: BIOGEN
  Company Number: US-BIOGEN-2024BI01288482

PATIENT
  Sex: Female

DRUGS (4)
  1. AVONEX [Suspect]
     Active Substance: INTERFERON BETA-1A
     Indication: Multiple sclerosis
     Route: 050
     Dates: start: 20170314, end: 20180327
  2. AVONEX [Suspect]
     Active Substance: INTERFERON BETA-1A
     Route: 050
     Dates: start: 20180724, end: 20190101
  3. AVONEX [Suspect]
     Active Substance: INTERFERON BETA-1A
     Dosage: PATIENT ALSO TOOK AVONEX FROM 01-APR-1998
     Route: 050
     Dates: start: 20201202
  4. AVONEX [Suspect]
     Active Substance: INTERFERON BETA-1A

REACTIONS (4)
  - Memory impairment [Unknown]
  - Illness [Unknown]
  - Influenza [Recovered/Resolved with Sequelae]
  - Injection site pain [Unknown]
